FAERS Safety Report 21604622 (Version 1)
Quarter: 2022Q4

REPORT INFORMATION
  Report Type: Spontaneous
  Country: IT (occurrence: IT)
  Receive Date: 20221116
  Receipt Date: 20221116
  Transmission Date: 20230112
  Serious: Yes (Other)
  Sender: FDA-Public Use
  Company Number: None

PATIENT
  Age: 62 Year
  Sex: Female
  Weight: 65 kg

DRUGS (6)
  1. CARBOPLATIN [Suspect]
     Active Substance: CARBOPLATIN
     Indication: Lung neoplasm
     Dosage: UNIT DOSE : 577MG , DURATION : 227 DAYS
     Dates: start: 20220301, end: 20221014
  2. PACLITAXEL [Suspect]
     Active Substance: PACLITAXEL
     Indication: Lung neoplasm
     Dosage: UNIT DOSE : 287MG , DURATION : 227 DAYS
     Dates: start: 20220301, end: 20221014
  3. CHLORPHENIRAMINE MALEATE [Concomitant]
     Active Substance: CHLORPHENIRAMINE MALEATE
     Indication: Vomiting
     Dosage: UNIT DOSE : 10MG , DURATION : 227 DAYS
     Dates: start: 20220301, end: 20221014
  4. FAMOTIDINE [Concomitant]
     Active Substance: FAMOTIDINE
     Indication: Ulcer
     Dosage: UNIT DOSE : 20MG , DURATION : 227 DAYS
     Dates: start: 20220301, end: 20221014
  5. DEXAMETHASONE [Concomitant]
     Active Substance: DEXAMETHASONE
     Indication: Hypercalcaemia of malignancy
     Dosage: UNIT DOSE : 20MG , DURATION : 227 DAYS
     Dates: start: 20220301, end: 20221014
  6. ONDANSETRON [Concomitant]
     Active Substance: ONDANSETRON
     Indication: Nausea
     Dosage: 8MG FOR 15 MINUTES , UNIT DOSE : 8 MG  , DURATION : 227 DAYS
     Dates: start: 20220301, end: 20221014

REACTIONS (6)
  - Anaemia [Recovering/Resolving]
  - Ascites [Recovering/Resolving]
  - Alopecia [Recovering/Resolving]
  - Asthenia [Recovering/Resolving]
  - Pyrexia [Recovered/Resolved]
  - Decreased appetite [Recovering/Resolving]

NARRATIVE: CASE EVENT DATE: 20220301
